FAERS Safety Report 14842393 (Version 1)
Quarter: 2018Q2

REPORT INFORMATION
  Report Type: Spontaneous
  Country: US (occurrence: US)
  Receive Date: 20180503
  Receipt Date: 20180503
  Transmission Date: 20180711
  Serious: No
  Sender: FDA-Public Use
  Company Number: US-MISSION PHARMACAL COMPANY-2047113

PATIENT
  Age: 10 Year
  Sex: Male

DRUGS (2)
  1. THIOLA [Suspect]
     Active Substance: TIOPRONIN
     Indication: CYSTINURIA
     Route: 065
     Dates: start: 20141102
  2. TUMS [Concomitant]
     Active Substance: CALCIUM CARBONATE
     Route: 065

REACTIONS (9)
  - Drug ineffective [Unknown]
  - Pain in extremity [Unknown]
  - Back pain [Unknown]
  - Hydronephrosis [Recovering/Resolving]
  - Dyspepsia [Unknown]
  - Arthralgia [Unknown]
  - Bladder pain [Unknown]
  - Chest pain [Unknown]
  - Myalgia [Unknown]
